FAERS Safety Report 7071833-0 (Version None)
Quarter: 2010Q4

REPORT INFORMATION
  Report Type: 
  Country: None (occurrence: None)
  Receive Date: 20101029
  Receipt Date: 20101018
  Transmission Date: 20110411
  Serious: Yes (Other)
  Sender: FDA-Public Use
  Company Number: PHHY2010NO11702

PATIENT
  Sex: Female

DRUGS (2)
  1. EXELON [Suspect]
     Dosage: UNK
     Route: 062
     Dates: start: 20090604, end: 20100202
  2. LAMICTAL [Concomitant]
     Dosage: UNK

REACTIONS (7)
  - DERMATITIS CONTACT [None]
  - EXCORIATION [None]
  - FIBROSIS [None]
  - RASH [None]
  - RASH PAPULAR [None]
  - SCAB [None]
  - SKIN PLAQUE [None]
